FAERS Safety Report 7163793-9 (Version None)
Quarter: 2010Q4

REPORT INFORMATION
  Report Type: 
  Country: None (occurrence: None)
  Receive Date: 20101215
  Receipt Date: 20100615
  Transmission Date: 20110411
  Serious: Yes (Other)
  Sender: FDA-Public Use
  Company Number: PH-PFIZER INC-2010074990

PATIENT
  Sex: Male

DRUGS (2)
  1. LYRICA [Suspect]
     Indication: BACK PAIN
     Dosage: UNK
     Dates: start: 20090101
  2. ARCOXIA [Concomitant]
     Dosage: UNK

REACTIONS (3)
  - ASTHMA [None]
  - FACE OEDEMA [None]
  - HYPERSENSITIVITY [None]
